FAERS Safety Report 4564794-7 (Version None)
Quarter: 2005Q1

REPORT INFORMATION
  Report Type: 
  Country: None (occurrence: None)
  Receive Date: 20050128
  Receipt Date: 20050114
  Transmission Date: 20050727
  Serious: Yes (Other)
  Sender: FDA-Public Use
  Company Number: US-MERCK-0501USA02759

PATIENT
  Age: 18 Year
  Sex: Female

DRUGS (8)
  1. ELSPAR [Suspect]
     Indication: ACUTE LYMPHOCYTIC LEUKAEMIA
     Route: 065
     Dates: start: 19810701
  2. ELSPAR [Suspect]
     Route: 030
     Dates: start: 19830101
  3. ELSPAR [Suspect]
     Route: 065
     Dates: start: 19831001
  4. DAUNORUBICIN [Concomitant]
     Indication: ACUTE LYMPHOCYTIC LEUKAEMIA
     Route: 065
     Dates: start: 19810701
  5. VINCRISTINE SULFATE [Concomitant]
     Indication: ACUTE LYMPHOCYTIC LEUKAEMIA
     Route: 065
     Dates: start: 19810701
  6. PREDNISONE [Concomitant]
     Indication: ACUTE LYMPHOCYTIC LEUKAEMIA
     Route: 065
     Dates: start: 19810701
  7. METHOTREXATE [Concomitant]
     Route: 065
     Dates: start: 19810701
  8. HORMONAL CONTRACEPTIVES (UNSPECIFIED) [Concomitant]
     Route: 065

REACTIONS (7)
  - BLOOD FIBRINOGEN DECREASED [None]
  - CEREBRAL INFARCTION [None]
  - CEREBROVASCULAR ACCIDENT [None]
  - LEUKAEMIA RECURRENT [None]
  - PLASMINOGEN DECREASED [None]
  - SUBCLAVIAN VEIN THROMBOSIS [None]
  - VASCULAR OCCLUSION [None]
